FAERS Safety Report 4727602-7 (Version None)
Quarter: 2005Q3

REPORT INFORMATION
  Report Type: 
  Country: None (occurrence: None)
  Receive Date: 20050726
  Receipt Date: 20050726
  Transmission Date: 20060218
  Serious: Yes (Hospitalization)
  Sender: FDA-Public Use
  Company Number: None

PATIENT
  Age: 72 Year
  Sex: Male

DRUGS (14)
  1. GLYBURIDE [Suspect]
     Dosage: 5 MG PO BID
     Route: 048
  2. GATIFLOXACIN [Suspect]
     Dosage: 400 MG PO QD
     Route: 048
  3. ALPRAZOLAM [Concomitant]
  4. ENALAPRIL MALEATE [Concomitant]
  5. FELODIPINE [Concomitant]
  6. FLUNISOLIDE NASAL SPRAY [Concomitant]
  7. FOLIC ACID [Concomitant]
  8. LASIX [Concomitant]
  9. GLYBURIDE [Concomitant]
  10. METFORMIN [Concomitant]
  11. OMEPRAZOLE [Concomitant]
  12. PERCOCET [Concomitant]
  13. ZOCOR [Concomitant]
  14. SOTALOL HCL [Concomitant]

REACTIONS (1)
  - BLOOD GLUCOSE DECREASED [None]
